FAERS Safety Report 4455205-0 (Version None)
Quarter: 2004Q3

REPORT INFORMATION
  Report Type: 
  Country: None (occurrence: None)
  Receive Date: 20040830
  Receipt Date: 20040518
  Transmission Date: 20050211
  Serious: No
  Sender: FDA-Public Use
  Company Number: 206249

PATIENT
  Age: 32 Year
  Sex: Female
  Weight: 56.7 kg

DRUGS (5)
  1. XOLAIR [Suspect]
     Indication: ASTHMA
     Dosage: 300 MG, 1/MONTH, SUBCUTANEOUS
     Route: 058
     Dates: start: 20040322, end: 20040421
  2. ALLEGRA [Concomitant]
  3. SINGULAIR [Concomitant]
  4. ADVAIR DISKUS (FLUTICASONE PROPIONATE, SALMETEROL XINAFOATE) [Concomitant]
  5. PAXIL CR [Concomitant]

REACTIONS (1)
  - RASH ERYTHEMATOUS [None]
